FAERS Safety Report 15736371 (Version 2)
Quarter: 2020Q1

REPORT INFORMATION
  Report Type: Spontaneous
  Country: ES (occurrence: ES)
  Receive Date: 20181218
  Receipt Date: 20200127
  Transmission Date: 20200409
  Serious: Yes (Hospitalization, Other)
  Sender: FDA-Public Use
  Company Number: ES-JUBILANT CADISTA PHARMACEUTICALS-2018JUB00524

PATIENT
  Age: 52 Year
  Sex: Female

DRUGS (9)
  1. PREDNISONE. [Suspect]
     Active Substance: PREDNISONE
     Dosage: 40 MG, 1X/DAY; REGIMEN #3
     Route: 048
     Dates: start: 20181025, end: 20181028
  2. PREDNISONE. [Suspect]
     Active Substance: PREDNISONE
     Indication: ACUTE GRAFT VERSUS HOST DISEASE
     Dosage: 60 MG, 1X/DAY; REGIMEN #1
     Route: 048
     Dates: start: 20181005, end: 201810
  3. PREDNISONE. [Suspect]
     Active Substance: PREDNISONE
     Dosage: 10 MG, 1X/DAY; REGIMEN #6
     Route: 048
     Dates: start: 20181108, end: 20181218
  4. INCB039110 (ITACITINIB) OR PLACEBO [Suspect]
     Active Substance: ITACITINIB
     Dosage: UNK; DAILY DOSE AND ROUTE OF ADMIN WERE BLINDED.INFORMATION WITHHELD
     Dates: start: 20181113
  5. INCB039110 (ITACITINIB) OR PLACEBO [Suspect]
     Active Substance: ITACITINIB
     Indication: ACUTE GRAFT VERSUS HOST DISEASE
     Dosage: 200 MG, 1X/DAY
     Route: 048
     Dates: start: 20181005, end: 20181106
  6. PREDNISONE. [Suspect]
     Active Substance: PREDNISONE
     Dosage: 30 MG, 1X/DAY; REGIMEN #4
     Route: 048
     Dates: start: 20181029, end: 20181103
  7. RITUXIMAB. [Concomitant]
     Active Substance: RITUXIMAB
     Dosage: UNK
     Dates: start: 20181009
  8. PREDNISONE. [Suspect]
     Active Substance: PREDNISONE
     Dosage: 50 MG, 1X/DAY; REGIMEN #2
     Route: 048
     Dates: start: 201810, end: 20181024
  9. PREDNISONE. [Suspect]
     Active Substance: PREDNISONE
     Dosage: 20 MG, 1X/DAY; REGIMEN #5
     Route: 048
     Dates: start: 20181104, end: 20181107

REACTIONS (8)
  - Infection [Recovered/Resolved]
  - Peripheral motor neuropathy [Recovered/Resolved]
  - Pericardial effusion [Recovered/Resolved]
  - Skin lesion [Recovering/Resolving]
  - Adenovirus infection [Unknown]
  - BK virus infection [Unknown]
  - Pleural effusion [Recovered/Resolved]
  - Fanconi syndrome acquired [Unknown]

NARRATIVE: CASE EVENT DATE: 20181019
